FAERS Safety Report 12074088 (Version 1)
Quarter: 2016Q1

REPORT INFORMATION
  Report Type: Report from Study
  Country: CA (occurrence: CA)
  Receive Date: 20160212
  Receipt Date: 20160212
  Transmission Date: 20160526
  Serious: Yes (Hospitalization)
  Sender: FDA-Public Use
  Company Number: CA-ABBVIE-16K-028-1556506-00

PATIENT
  Sex: Female

DRUGS (1)
  1. HUMIRA [Suspect]
     Active Substance: ADALIMUMAB
     Indication: ANKYLOSING SPONDYLITIS
     Route: 058
     Dates: start: 20150302, end: 201507

REACTIONS (3)
  - Ascites [Unknown]
  - Lung disorder [Not Recovered/Not Resolved]
  - Diabetic complication [Unknown]

NARRATIVE: CASE EVENT DATE: 2015
